FAERS Safety Report 9193134 (Version 1)
Quarter: 2013Q1

REPORT INFORMATION
  Report Type: Spontaneous
  Country: US (occurrence: US)
  Receive Date: 20130327
  Receipt Date: 20130327
  Transmission Date: 20140127
  Serious: Yes (Hospitalization)
  Sender: FDA-Public Use
  Company Number: US-ASTRAZENECA-2013SE18165

PATIENT
  Age: 79 Year
  Sex: Female
  Weight: 53.5 kg

DRUGS (3)
  1. SYMBICORT [Suspect]
     Indication: CHRONIC OBSTRUCTIVE PULMONARY DISEASE
     Dosage: 320 MCG TWO PUFFS UNKNOWN FREQUENCY
     Route: 055
     Dates: start: 2007
  2. ALTACE [Concomitant]
     Indication: BLOOD PRESSURE ABNORMAL
  3. SYNTHROID [Concomitant]

REACTIONS (6)
  - Pneumonia [Recovered/Resolved]
  - Chronic lymphocytic leukaemia [Unknown]
  - Fall [Unknown]
  - Head injury [Unknown]
  - Loss of consciousness [Unknown]
  - Intentional drug misuse [Unknown]
